FAERS Safety Report 25832882 (Version 1)
Quarter: 2025Q3

REPORT INFORMATION
  Report Type: Spontaneous
  Country: US (occurrence: None)
  Receive Date: 20250922
  Receipt Date: 20250922
  Transmission Date: 20251021
  Serious: Yes (Other)
  Sender: FDA-CTU
  Company Number: None

PATIENT
  Age: 83 Year
  Sex: Female

DRUGS (2)
  1. TROSPIUM [Suspect]
     Active Substance: TROSPIUM
     Indication: Hypertonic bladder
  2. RABEPRAZOLE [Suspect]
     Active Substance: RABEPRAZOLE

REACTIONS (1)
  - Product appearance confusion [None]

NARRATIVE: CASE EVENT DATE: 20250917
